FAERS Safety Report 20143180 (Version 1)
Quarter: 2021Q4

REPORT INFORMATION
  Report Type: Spontaneous
  Country: FR (occurrence: FR)
  Receive Date: 20211203
  Receipt Date: 20211203
  Transmission Date: 20220303
  Serious: Yes (Other)
  Sender: FDA-Public Use
  Company Number: FR-GLAXOSMITHKLINE-FR2021EME238725

PATIENT
  Age: 94 Year
  Sex: Female
  Weight: 49 kg

DRUGS (5)
  1. LORATADINE [Suspect]
     Active Substance: LORATADINE
     Indication: Product used for unknown indication
     Dosage: 1 MILLIMOLE (1 MMOL )
     Route: 048
  2. LOSARTAN [Suspect]
     Active Substance: LOSARTAN
     Indication: Product used for unknown indication
     Dosage: 1 MILLIMOLE (1 MMOL 50 MG/12.5 MG)
     Route: 048
  3. PAROXETINE HYDROCHLORIDE [Suspect]
     Active Substance: PAROXETINE HYDROCHLORIDE
     Indication: Product used for unknown indication
     Dosage: 1 MILLIMOLE (1 MMOL 0.2% GEL)
     Route: 048
     Dates: start: 20210607, end: 20210628
  4. CARBOMER [Concomitant]
     Active Substance: CARBOMER
     Indication: Product used for unknown indication
     Dosage: 6 MILLIMOLE (6 MMOL)
     Route: 047
     Dates: start: 20210414, end: 20210706
  5. OXAZEPAM [Concomitant]
     Active Substance: OXAZEPAM
     Indication: Product used for unknown indication
     Dosage: 1.5 MILLIMOLE (1.5 MMOL 10 MG)
     Route: 048

REACTIONS (1)
  - Hyponatraemia [Recovered/Resolved]

NARRATIVE: CASE EVENT DATE: 20210628
